FAERS Safety Report 11519026 (Version 2)
Quarter: 2015Q4

REPORT INFORMATION
  Report Type: Report from Study
  Country: US (occurrence: US)
  Receive Date: 20150917
  Receipt Date: 20151005
  Transmission Date: 20160304
  Serious: Yes (Other)
  Sender: FDA-Public Use
  Company Number: US-GILEAD-2015-0172002

PATIENT
  Age: 54 Year
  Sex: Female
  Weight: 85.27 kg

DRUGS (2)
  1. SOFOSBUVIR [Suspect]
     Active Substance: SOFOSBUVIR
     Indication: CHRONIC HEPATITIS C
     Dosage: 400 MG, UNK
     Route: 048
     Dates: start: 20150901
  2. RIBASPHERE [Suspect]
     Active Substance: RIBAVIRIN
     Indication: CHRONIC HEPATITIS C
     Dosage: UNK
     Route: 065
     Dates: start: 20150901

REACTIONS (11)
  - Visual impairment [Unknown]
  - Emotional disorder [Unknown]
  - Crying [Unknown]
  - Cognitive disorder [Unknown]
  - Suicidal ideation [Recovered/Resolved]
  - Nausea [Unknown]
  - Memory impairment [Unknown]
  - Anxiety [Unknown]
  - Impaired driving ability [Unknown]
  - Alopecia [Unknown]
  - Irritability [Unknown]

NARRATIVE: CASE EVENT DATE: 201509
